FAERS Safety Report 11782398 (Version 1)
Quarter: 2015Q4

REPORT INFORMATION
  Report Type: Spontaneous
  Country: GB (occurrence: GB)
  Receive Date: 20151127
  Receipt Date: 20151127
  Transmission Date: 20160305
  Serious: Yes (Other)
  Sender: FDA-Public Use
  Company Number: GB-ACCORD-035656

PATIENT
  Age: 46 Year
  Sex: Male
  Weight: 152 kg

DRUGS (6)
  1. OLMESARTAN/OLMESARTAN MEDOXOMIL [Concomitant]
     Dates: start: 20151104
  2. OMEPRAZOLE. [Concomitant]
     Active Substance: OMEPRAZOLE
     Dates: start: 20140108
  3. RAMIPRIL. [Suspect]
     Active Substance: RAMIPRIL
     Indication: PRODUCT USED FOR UNKNOWN INDICATION
     Dosage: HAD BEEN TAKING RAMIPRIL FOR A NUMBER OF YEARS
  4. ALLOPURINOL. [Concomitant]
     Active Substance: ALLOPURINOL
     Dates: start: 20140512
  5. LEVOTHYROXINE. [Concomitant]
     Active Substance: LEVOTHYROXINE
     Dates: start: 20061207
  6. RECTOGESIC [Concomitant]
     Active Substance: NITROGLYCERIN
     Dosage: USE AS DIRECTED
     Dates: start: 20151029

REACTIONS (2)
  - Paraesthesia oral [Recovering/Resolving]
  - Lip swelling [Recovering/Resolving]

NARRATIVE: CASE EVENT DATE: 20151104
